FAERS Safety Report 16530293 (Version 2)
Quarter: 2019Q3

REPORT INFORMATION
  Report Type: Spontaneous
  Country: IN (occurrence: IN)
  Receive Date: 20190704
  Receipt Date: 20190727
  Transmission Date: 20191004
  Serious: Yes (Hospitalization, Other)
  Sender: FDA-Public Use
  Company Number: IN-B.I. PHARMACEUTICALS,INC./RIDGEFIELD-2019-BI-028206

PATIENT
  Age: 42 Year
  Sex: Male
  Weight: 50 kg

DRUGS (3)
  1. GIBTULIO MET [Suspect]
     Active Substance: EMPAGLIFLOZIN\METFORMIN HYDROCHLORIDE
     Indication: PRODUCT USED FOR UNKNOWN INDICATION
     Route: 065
  2. METFORMIN [Concomitant]
     Active Substance: METFORMIN HYDROCHLORIDE
     Indication: PRODUCT USED FOR UNKNOWN INDICATION
     Route: 065
  3. INSULIN GLARGINE [Concomitant]
     Active Substance: INSULIN GLARGINE
     Indication: PRODUCT USED FOR UNKNOWN INDICATION
     Route: 065

REACTIONS (6)
  - Metabolic acidosis [Unknown]
  - Somnolence [Unknown]
  - Sensory loss [Unknown]
  - Vomiting [Unknown]
  - Diabetic ketoacidosis [Unknown]
  - Dizziness [Unknown]

NARRATIVE: CASE EVENT DATE: 20190625
